FAERS Safety Report 17779239 (Version 3)
Quarter: 2020Q2

REPORT INFORMATION
  Report Type: Spontaneous
  Country: FR (occurrence: FR)
  Receive Date: 20200513
  Receipt Date: 20200626
  Transmission Date: 20200714
  Serious: Yes (Other)
  Sender: FDA-Public Use
  Company Number: FR-BAYER-2020-084256

PATIENT
  Age: 32 Year
  Sex: Female

DRUGS (2)
  1. VITRAKVI [Suspect]
     Active Substance: LAROTRECTINIB
     Indication: GLIOBLASTOMA
     Dosage: 100 MG X 2 / DAY
     Dates: start: 20200122, end: 20200513
  2. VITRAKVI [Suspect]
     Active Substance: LAROTRECTINIB
     Indication: GLIOBLASTOMA
     Dosage: 75 MG X 2 / DAY
     Dates: start: 20200514, end: 20200526

REACTIONS (3)
  - Cerebellar syndrome [None]
  - Glioblastoma [None]
  - Cell death [Recovered/Resolved]

NARRATIVE: CASE EVENT DATE: 202004
